FAERS Safety Report 22531485 (Version 1)
Quarter: 2023Q2

REPORT INFORMATION
  Report Type: Spontaneous
  Country: US (occurrence: None)
  Receive Date: 20230606
  Receipt Date: 20230606
  Transmission Date: 20230722
  Serious: Yes (Other)
  Sender: FDA-Public Use
  Company Number: None

PATIENT
  Age: 69 Year
  Sex: Female

DRUGS (1)
  1. ZARXIO [Suspect]
     Active Substance: FILGRASTIM-SNDZ
     Indication: Agranulocytosis
     Dosage: OTHER FREQUENCY : DAILY X 5 DAYS;?
     Route: 058
     Dates: start: 20230530, end: 20230603

REACTIONS (6)
  - Chest pain [None]
  - Cardiac flutter [None]
  - Heart rate irregular [None]
  - Rash pruritic [None]
  - Ageusia [None]
  - Diarrhoea [None]
